FAERS Safety Report 20094845 (Version 1)
Quarter: 2021Q4

REPORT INFORMATION
  Report Type: Spontaneous
  Country: US (occurrence: None)
  Receive Date: 20211122
  Receipt Date: 20211122
  Transmission Date: 20220304
  Serious: No
  Sender: FDA-Public Use
  Company Number: US-Hikma Pharmaceuticals USA Inc.-US-H14001-21-02693

PATIENT
  Age: 90 Year
  Sex: Male

DRUGS (20)
  1. IPRATROPIUM BROMIDE [Suspect]
     Active Substance: IPRATROPIUM BROMIDE
     Indication: Upper-airway cough syndrome
     Dosage: ONLY ONCE
     Dates: start: 20210604, end: 20210605
  2. FLUTICASONE [Concomitant]
     Active Substance: FLUTICASONE
     Indication: Sinusitis
     Route: 045
  3. OSLOXACAN [Concomitant]
     Indication: Macular degeneration
     Route: 065
  4. DORZOLAMIDE [Concomitant]
     Active Substance: DORZOLAMIDE
     Indication: Macular degeneration
     Dosage: ONE DROP LEFT EYE
     Route: 065
  5. LUMIGAN [Concomitant]
     Active Substance: BIMATOPROST
     Indication: Product used for unknown indication
     Dosage: ONE DROP BOTH EYES AT NIGHT
     Route: 065
  6. CERDD [Concomitant]
     Indication: Cardiac pacemaker insertion
     Route: 065
  7. PRESERDISIOND [Concomitant]
     Indication: Eye disorder
     Dosage: UNKNOWN
     Route: 065
  8. GLUCOSAMINE [Concomitant]
     Active Substance: GLUCOSAMINE
     Indication: Osteoarthritis
     Route: 065
  9. VITAMINS AND MINERAL [Concomitant]
     Indication: Prophylaxis
     Dosage: UNKNOWN
     Route: 065
  10. ECOTRINE [Concomitant]
     Indication: Cardiac pacemaker insertion
     Route: 065
  11. GERCOT [Concomitant]
     Indication: Constipation
     Route: 065
  12. LINSTENOPRIL [Concomitant]
     Indication: Cardiac disorder
     Route: 065
  13. CALCIUM [Concomitant]
     Active Substance: CALCIUM
     Indication: Vitamin supplementation
     Route: 065
  14. CLINDAMYCIN [Concomitant]
     Active Substance: CLINDAMYCIN
     Indication: Product used for unknown indication
     Route: 065
  15. COSMETICS [Concomitant]
     Active Substance: COSMETICS
     Indication: Inflammation
     Dosage: UNKNOWN
     Route: 065
  16. TRP PAIN RELIEF [Concomitant]
     Indication: Tinnitus
     Dosage: UNKNOWN
     Route: 065
  17. TREMECILON [Concomitant]
     Indication: Rash
     Dosage: UNKNOWN
     Route: 065
  18. FERROUS SULFATE [Concomitant]
     Active Substance: FERROUS SULFATE
     Indication: Mineral supplementation
     Dosage: UNKNOWN
     Route: 065
  19. SODIUM GLUCOSIDE [Concomitant]
     Indication: Constipation
     Dosage: UNKNOWN
     Route: 065
  20. CURSED WRAP [Concomitant]
     Indication: Inflammation
     Dosage: UNKNOWN
     Route: 065

REACTIONS (2)
  - Headache [Recovered/Resolved]
  - Facial pain [Recovered/Resolved]

NARRATIVE: CASE EVENT DATE: 20210604
